FAERS Safety Report 5340080-2 (Version None)
Quarter: 2007Q2

REPORT INFORMATION
  Report Type: 
  Country: None (occurrence: None)
  Receive Date: 20070529
  Receipt Date: 20070523
  Transmission Date: 20071010
  Serious: Yes (Hospitalization)
  Sender: FDA-Public Use
  Company Number: 2007SP005533

PATIENT
  Age: 66 Year
  Sex: Female
  Weight: 79 kg

DRUGS (3)
  1. PEG-INTRON [Suspect]
     Indication: HEPATITIS C
     Dosage: 0.75 ML;QW;SC
     Route: 058
     Dates: end: 20070313
  2. RIBAVIRIN [Suspect]
     Indication: HEPATITIS C
     Dosage: 1250 MG, QD;PO
     Route: 048
  3. ENALAPRIL MALEATE [Concomitant]

REACTIONS (3)
  - ANAEMIA [None]
  - PULMONARY CONGESTION [None]
  - PULMONARY OEDEMA [None]
